FAERS Safety Report 14540417 (Version 2)
Quarter: 2018Q1

REPORT INFORMATION
  Report Type: Report from Study
  Country: FR (occurrence: FR)
  Receive Date: 20180216
  Receipt Date: 20180301
  Transmission Date: 20180509
  Serious: Yes (Hospitalization)
  Sender: FDA-Public Use
  Company Number: FR-ASTELLAS-2018US008252

PATIENT
  Age: 78 Year
  Sex: Male

DRUGS (1)
  1. ERLOTINIB [Suspect]
     Active Substance: ERLOTINIB
     Indication: NON-SMALL CELL LUNG CANCER
     Dosage: UNK, UNKNOWN FREQ.
     Route: 065
     Dates: start: 20160824, end: 20160918

REACTIONS (2)
  - Diarrhoea [Recovered/Resolved]
  - Inflammation [Recovered/Resolved]

NARRATIVE: CASE EVENT DATE: 20160918
